FAERS Safety Report 16799323 (Version 2)
Quarter: 2019Q4

REPORT INFORMATION
  Report Type: Spontaneous
  Country: US (occurrence: US)
  Receive Date: 20190912
  Receipt Date: 20191002
  Transmission Date: 20200122
  Serious: No
  Sender: FDA-Public Use
  Company Number: US-PFIZER INC-2019393238

PATIENT
  Age: 60 Year
  Sex: Male
  Weight: 79.37 kg

DRUGS (1)
  1. SUTENT [Suspect]
     Active Substance: SUNITINIB MALATE
     Indication: NEOPLASM MALIGNANT
     Dosage: 50 MG CYCLIC (ONCE A DAY FOR 2/1 SCHEDULE)
     Dates: start: 20190827

REACTIONS (3)
  - Rash [Not Recovered/Not Resolved]
  - Yellow skin [Recovered/Resolved]
  - Nasopharyngitis [Unknown]

NARRATIVE: CASE EVENT DATE: 20190903
